FAERS Safety Report 5915526-9 (Version None)
Quarter: 2008Q4

REPORT INFORMATION
  Report Type: 
  Country: None (occurrence: None)
  Receive Date: 20081010
  Receipt Date: 20080624
  Transmission Date: 20090506
  Serious: No
  Sender: FDA-Public Use
  Company Number: A0734537A

PATIENT
  Age: 60 Year
  Sex: Female

DRUGS (5)
  1. TYKERB [Suspect]
     Indication: BREAST CANCER
     Dosage: 1250MG PER DAY
     Route: 048
     Dates: start: 20080301
  2. AUGMENTIN '125' [Suspect]
     Indication: SKIN INFECTION
     Dosage: 875MG TWICE PER DAY
     Route: 048
     Dates: start: 20080613
  3. XELODA [Concomitant]
  4. TOPROL-XL [Concomitant]
  5. NORVASC [Concomitant]

REACTIONS (2)
  - DIARRHOEA [None]
  - SKIN INFECTION [None]
